FAERS Safety Report 25349798 (Version 1)
Quarter: 2025Q2

REPORT INFORMATION
  Report Type: Spontaneous
  Country: US (occurrence: US)
  Receive Date: 20250523
  Receipt Date: 20250523
  Transmission Date: 20250716
  Serious: Yes (Other)
  Sender: Steriscience PTE
  Company Number: US-STERISCIENCE B.V.-2024-ST-001579

PATIENT
  Age: 71 Year
  Sex: Female

DRUGS (11)
  1. NAFCILLIN [Suspect]
     Active Substance: NAFCILLIN SODIUM
     Indication: Meningitis staphylococcal
     Route: 065
  2. NAFCILLIN [Suspect]
     Active Substance: NAFCILLIN SODIUM
     Indication: Staphylococcal bacteraemia
  3. CEFAZOLIN [Suspect]
     Active Substance: CEFAZOLIN
     Indication: Meningitis staphylococcal
     Route: 065
  4. CEFAZOLIN [Suspect]
     Active Substance: CEFAZOLIN
     Indication: Staphylococcal bacteraemia
  5. GENTAMICIN [Suspect]
     Active Substance: GENTAMICIN
     Indication: Meningitis staphylococcal
     Route: 065
  6. GENTAMICIN [Suspect]
     Active Substance: GENTAMICIN
     Indication: Staphylococcal bacteraemia
  7. RIFAMPIN [Suspect]
     Active Substance: RIFAMPIN
     Indication: Meningitis staphylococcal
     Route: 065
  8. RIFAMPIN [Suspect]
     Active Substance: RIFAMPIN
     Indication: Staphylococcal bacteraemia
  9. VANCOMYCIN [Concomitant]
     Active Substance: VANCOMYCIN
     Indication: Evidence based treatment
     Route: 065
  10. CEFTRIAXONE [Concomitant]
     Active Substance: CEFTRIAXONE
     Indication: Evidence based treatment
     Route: 065
  11. ACYCLOVIR [Concomitant]
     Active Substance: ACYCLOVIR
     Indication: Evidence based treatment
     Route: 065

REACTIONS (1)
  - Drug ineffective [Unknown]
